FAERS Safety Report 13592522 (Version 1)
Quarter: 2017Q2

REPORT INFORMATION
  Report Type: Report from Study
  Country: US (occurrence: US)
  Receive Date: 20170530
  Receipt Date: 20170530
  Transmission Date: 20170830
  Serious: Yes (Hospitalization, Other)
  Sender: FDA-Public Use
  Company Number: US-JNJFOC-20170323659

PATIENT
  Age: 77 Year
  Sex: Male

DRUGS (4)
  1. IMBRUVICA [Suspect]
     Active Substance: IBRUTINIB
     Indication: CHRONIC LYMPHOCYTIC LEUKAEMIA
     Route: 048
     Dates: start: 20131212
  2. ASPIRIN. [Concomitant]
     Active Substance: ASPIRIN
  3. IMBRUVICA [Suspect]
     Active Substance: IBRUTINIB
     Indication: CHRONIC LYMPHOCYTIC LEUKAEMIA
     Dosage: START PERIODS 1166 DAYS
     Route: 048
     Dates: start: 20131211
  4. IMBRUVICA [Suspect]
     Active Substance: IBRUTINIB
     Indication: CHRONIC LYMPHOCYTIC LEUKAEMIA
     Dosage: 1166 DAYS
     Route: 048
     Dates: start: 20170317

REACTIONS (13)
  - Platelet count abnormal [Unknown]
  - Atrial fibrillation [Recovered/Resolved]
  - Lipoma [Unknown]
  - Dysuria [Unknown]
  - Duodenal ulcer haemorrhage [Unknown]
  - Purpura [Unknown]
  - Hypergammaglobulinaemia [Unknown]
  - Nasal discomfort [Unknown]
  - Increased tendency to bruise [Unknown]
  - Empyema [Recovered/Resolved]
  - Streptococcal sepsis [Recovered/Resolved]
  - Peripheral swelling [Recovering/Resolving]
  - Asthenia [Recovering/Resolving]

NARRATIVE: CASE EVENT DATE: 2017
